FAERS Safety Report 12532394 (Version 1)
Quarter: 2016Q3

REPORT INFORMATION
  Report Type: Spontaneous
  Country: IL (occurrence: IL)
  Receive Date: 20160706
  Receipt Date: 20160706
  Transmission Date: 20161109
  Serious: Yes (Other)
  Sender: FDA-Public Use
  Company Number: IL-HQ SPECIALTY-IL-2016INT000440

PATIENT
  Age: 16 Year
  Sex: Female

DRUGS (1)
  1. CISPLATIN. [Suspect]
     Active Substance: CISPLATIN
     Indication: SQUAMOUS CELL CARCINOMA OF THE TONGUE
     Dosage: 390 MG/M2, TOTAL OVER SIX COURSES

REACTIONS (4)
  - Gastrointestinal mucocoele [Recovered/Resolved]
  - Mucosal inflammation [Recovered/Resolved]
  - Masticatory pain [Recovered/Resolved]
  - Dry mouth [Recovered/Resolved]
